FAERS Safety Report 8622510-3 (Version None)
Quarter: 2012Q3

REPORT INFORMATION
  Report Type: 
  Country: None (occurrence: None)
  Receive Date: 20120827
  Receipt Date: 20120821
  Transmission Date: 20120928
  Serious: No
  Sender: FDA-Public Use
  Company Number: US-PFIZER INC-2012205497

PATIENT
  Age: 53 Year
  Sex: Female
  Weight: 61.224 kg

DRUGS (5)
  1. TRAZODONE [Concomitant]
     Dosage: UNK
  2. TEGRETOL [Concomitant]
     Dosage: UNK
  3. LAMICTAL [Concomitant]
     Dosage: UNK
  4. CLONAZEPAM [Concomitant]
     Dosage: UNK
  5. GEODON [Suspect]
     Indication: BIPOLAR DISORDER
     Dosage: 60 MG, 2X/DAY
     Route: 048
     Dates: start: 20051101, end: 20120801

REACTIONS (6)
  - INSOMNIA [None]
  - FEELING COLD [None]
  - MOOD SWINGS [None]
  - NERVOUSNESS [None]
  - WITHDRAWAL SYNDROME [None]
  - VOMITING [None]
